FAERS Safety Report 9097281 (Version 1)
Quarter: 2013Q1

REPORT INFORMATION
  Report Type: Spontaneous
  Country: US (occurrence: US)
  Receive Date: 20130212
  Receipt Date: 20130212
  Transmission Date: 20140127
  Serious: Yes (Death)
  Sender: FDA-Public Use
  Company Number: PHHY2013US013069

PATIENT
  Age: 89 Year
  Sex: Female

DRUGS (3)
  1. ASCRIPTIN BUFFERED REG STRENGTH TABLETS [Suspect]
     Indication: CEREBROVASCULAR ACCIDENT
     Dosage: 2 DF, QID
     Route: 048
     Dates: start: 1970
  2. DIURETICS [Concomitant]
     Indication: HYPERTENSION
  3. ANTIHYPERTENSIVE DRUGS [Concomitant]
     Indication: HYPERTENSION

REACTIONS (2)
  - Cardiac failure congestive [Fatal]
  - Incorrect drug administration duration [Unknown]
